FAERS Safety Report 11471257 (Version 1)
Quarter: 2015Q3

REPORT INFORMATION
  Report Type: Report from Study
  Country: US (occurrence: US)
  Receive Date: 20150908
  Receipt Date: 20150908
  Transmission Date: 20151125
  Serious: No
  Sender: FDA-Public Use
  Company Number: PHEH2015US001788

PATIENT
  Sex: Female
  Weight: 58.96 kg

DRUGS (1)
  1. GILENYA [Suspect]
     Active Substance: FINGOLIMOD HYDROCHLORIDE
     Indication: MULTIPLE SCLEROSIS
     Dosage: 0.5 MG, QD
     Route: 048
     Dates: start: 20150112

REACTIONS (8)
  - Blood pressure abnormal [Unknown]
  - Feeling cold [Not Recovered/Not Resolved]
  - Muscle tightness [Not Recovered/Not Resolved]
  - Bone pain [Not Recovered/Not Resolved]
  - Memory impairment [Not Recovered/Not Resolved]
  - Migraine [Unknown]
  - Headache [Unknown]
  - Sinusitis [Unknown]
